FAERS Safety Report 10045418 (Version 2)
Quarter: 2014Q2

REPORT INFORMATION
  Report Type: Spontaneous
  Country: US (occurrence: US)
  Receive Date: 20140328
  Receipt Date: 20140410
  Transmission Date: 20141212
  Serious: Yes (Death, Hospitalization, Other)
  Sender: FDA-Public Use
  Company Number: US-AMGEN-USASP2014021147

PATIENT
  Age: 72 Year
  Sex: Female
  Weight: 74.83 kg

DRUGS (23)
  1. PROLIA [Suspect]
     Indication: OSTEOPOROSIS POSTMENOPAUSAL
     Dosage: 60 MG, Q6MO
     Route: 058
     Dates: start: 20131113
  2. PROLIA [Suspect]
     Indication: LUMBAR VERTEBRAL FRACTURE
  3. ALBUTEROL                          /00139501/ [Concomitant]
     Indication: DYSPNOEA
     Dosage: UNK UNK, AS NECESSARY
  4. ALPRAZOLAM [Concomitant]
     Dosage: 0.5 MG, TID
     Route: 048
  5. ASPIRIN [Concomitant]
     Dosage: 81 MG, QD
  6. SYMBICORT [Concomitant]
  7. CALCIUM PLUS VITAMIN D [Concomitant]
     Dosage: UNK UNK, QD
  8. CARBIDOPA/LEVODOPA [Concomitant]
     Dosage: 10/100 MG QHS
  9. CITALOPRAM [Concomitant]
     Dosage: 20 MG, QD
  10. COENZYME Q10 [Concomitant]
     Dosage: UNK UNK, QD
  11. VITAMIN B12                        /00056201/ [Concomitant]
     Dosage: 1000 MUG/ML, Q2WK
     Route: 030
  12. CYCLOBENZAPRINE [Concomitant]
     Indication: MUSCLE SPASMS
     Dosage: 10 MG, TID
  13. COLACE [Concomitant]
     Dosage: 100 MG, BID
  14. FLUTICASONE [Concomitant]
     Dosage: UNK UNK, AS NECESSARY
  15. GABAPENTIN [Concomitant]
     Dosage: 600 MG, BID
     Route: 048
  16. IMIPRAMINE [Concomitant]
     Dosage: 50 MG, TID
     Route: 048
  17. MAGNESIUM HYDROXIDE [Concomitant]
     Indication: CONSTIPATION
     Dosage: 400/5 ML 30 ML PER DAY AS NECESSARY
  18. METOPROLOL [Concomitant]
     Dosage: 25 MG, BID
  19. SINGULAIR [Concomitant]
     Dosage: 10 MG, QD
  20. NICOTINE [Concomitant]
     Dosage: 14 MUG, QD
  21. JANUVIA [Concomitant]
     Dosage: 100 MG, UNK
  22. TRAMADOL [Concomitant]
     Dosage: 50 MG, UNK
  23. WARFARIN [Concomitant]
     Dosage: 4 MG, QD

REACTIONS (19)
  - Death [Fatal]
  - Acute hepatic failure [Unknown]
  - Klebsiella sepsis [Unknown]
  - Renal mass [Unknown]
  - Urinary tract infection bacterial [Recovered/Resolved]
  - Hepatitis [Unknown]
  - Mental status changes [Unknown]
  - Dehydration [Unknown]
  - Mydriasis [Unknown]
  - Excoriation [Unknown]
  - Hypotension [Unknown]
  - Swelling face [Unknown]
  - Malaise [Unknown]
  - Hypophagia [Unknown]
  - Feeling abnormal [Unknown]
  - Hyperglycaemia [Unknown]
  - Confusional state [Unknown]
  - Fatigue [Unknown]
  - Asthenia [Unknown]
